FAERS Safety Report 10666366 (Version 2)
Quarter: 2018Q3

REPORT INFORMATION
  Report Type: Spontaneous
  Country: US (occurrence: US)
  Receive Date: 20141220
  Receipt Date: 20180716
  Transmission Date: 20181010
  Serious: No
  Sender: FDA-Public Use
  Company Number: US-009507513-1412USA007127

PATIENT
  Age: 20 Year
  Sex: Female

DRUGS (5)
  1. ZIDOVUDINE. [Suspect]
     Active Substance: ZIDOVUDINE
     Dosage: COURSE NUMBER 2, TOTAL DAILY DOSE 1
     Route: 042
     Dates: start: 2014, end: 2014
  2. ZIDOVUDINE. [Suspect]
     Active Substance: ZIDOVUDINE
     Dosage: COURSE NUMBER 1, TOTAL DAILY DOSE 2
     Route: 042
     Dates: start: 2014, end: 2014
  3. ISENTRESS [Suspect]
     Active Substance: RALTEGRAVIR POTASSIUM
     Dosage: COURSE NUMBER 1, TOTAL DAILY DOSE 800
     Route: 048
     Dates: start: 2014
  4. LAMIVUDINE AND ZIDOVUDINE [Suspect]
     Active Substance: LAMIVUDINE\ZIDOVUDINE
     Dosage: COURSE NUMBER 1, TOTAL DAILY DOSE 900
     Route: 048
     Dates: start: 2014
  5. LOPINAVIR (+) RITONAVIR [Suspect]
     Active Substance: LOPINAVIR\RITONAVIR
     Dosage: COURSE NUMBER 1, TOTAL DAILY DOSE 1250
     Route: 048
     Dates: start: 2014

REACTIONS (1)
  - Maternal exposure during pregnancy [Recovered/Resolved]
